FAERS Safety Report 5498775-6 (Version None)
Quarter: 2007Q4

REPORT INFORMATION
  Report Type: 
  Country: None (occurrence: None)
  Receive Date: 20071026
  Receipt Date: 20070717
  Transmission Date: 20080405
  Serious: No
  Sender: FDA-Public Use
  Company Number: A0664568A

PATIENT
  Age: 54 Year
  Sex: Female

DRUGS (9)
  1. ADVAIR DISKUS 100/50 [Suspect]
     Dosage: 1PUFF TWICE PER DAY
     Route: 055
     Dates: start: 20070716, end: 20070716
  2. LIPITOR [Concomitant]
  3. TOPROL-XL [Concomitant]
  4. KLONOPIN [Concomitant]
  5. ASPIRIN [Concomitant]
  6. NORVASC [Concomitant]
  7. TYLENOL W/ CODEINE [Concomitant]
  8. VITAMIN + MINERAL SUPPLEMENT [Concomitant]
  9. WATER PILL [Concomitant]

REACTIONS (4)
  - BLOOD PRESSURE INCREASED [None]
  - DIZZINESS [None]
  - HEART RATE INCREASED [None]
  - MIGRAINE [None]
